FAERS Safety Report 18521616 (Version 1)
Quarter: 2020Q4

REPORT INFORMATION
  Report Type: Spontaneous
  Country: US (occurrence: US)
  Receive Date: 20201118
  Receipt Date: 20201118
  Transmission Date: 20210114
  Serious: Yes (Hospitalization)
  Sender: FDA-Public Use
  Company Number: None

PATIENT
  Age: 66 Year
  Sex: Female

DRUGS (1)
  1. REPATHA [Suspect]
     Active Substance: EVOLOCUMAB
     Dosage: ?          OTHER FREQUENCY:Q2WK;?
     Route: 058

REACTIONS (3)
  - Cardiac operation [None]
  - Back pain [None]
  - Blood cholesterol increased [None]

NARRATIVE: CASE EVENT DATE: 20200616
